FAERS Safety Report 17588095 (Version 1)
Quarter: 2020Q1

REPORT INFORMATION
  Report Type: Spontaneous
  Country: CN (occurrence: CN)
  Receive Date: 20200327
  Receipt Date: 20200327
  Transmission Date: 20200409
  Serious: Yes (Hospitalization)
  Sender: FDA-Public Use
  Company Number: CN-BAXTER-2020BAX006398

PATIENT
  Age: 10 Year
  Sex: Male
  Weight: 25.8 kg

DRUGS (12)
  1. HEMEIXIN [Suspect]
     Active Substance: TOPOTECAN HYDROCHLORIDE
     Indication: NEUROBLASTOMA
     Dosage: DAY 1-5, DILUTED WITH 28ML 0.9% SODIUM CHLORIDE
     Route: 041
     Dates: start: 20200304, end: 20200308
  2. 0.9% SODIUM CHLORIDE INJECTION [Suspect]
     Active Substance: SODIUM CHLORIDE
     Indication: MEDICATION DILUTION
     Dosage: DILUTED WITH 238 MG ENDOXAN
     Route: 041
     Dates: start: 20200304, end: 20200308
  3. 0.9% SODIUM CHLORIDE INJECTION [Suspect]
     Active Substance: SODIUM CHLORIDE
     Dosage: DILUTED WITH ENDOXAN; DOSE RE-INTRODUCED
     Route: 041
     Dates: start: 202003
  4. 0.9% SODIUM CHLORIDE INJECTION [Suspect]
     Active Substance: SODIUM CHLORIDE
     Dosage: DILUTED WITH HEMEIXIN; DOSE RE-INTRODUCED
     Route: 041
     Dates: start: 202003
  5. ENDOXAN [Suspect]
     Active Substance: CYCLOPHOSPHAMIDE
     Indication: NEUROBLASTOMA
     Dosage: DAY 1-5, DILUTED WITH 57 ML 0.9% SODIUM CHLORIDE
     Route: 041
     Dates: start: 20200304, end: 20200308
  6. 0.9% SODIUM CHLORIDE INJECTION [Suspect]
     Active Substance: SODIUM CHLORIDE
     Dosage: DILUTED WITH 4.8 MG ONDANSETRON HYDROCHLORIDE
     Route: 041
     Dates: start: 20200304, end: 20200308
  7. ENDOXAN [Suspect]
     Active Substance: CYCLOPHOSPHAMIDE
     Indication: REFRACTORY CANCER
     Dosage: DILUTED WITH 0.9% SODIUM CHLORIDE; DOSE RE-INTRODUCED
     Route: 041
     Dates: start: 202003
  8. 0.9% SODIUM CHLORIDE INJECTION [Suspect]
     Active Substance: SODIUM CHLORIDE
     Dosage: DILUTED WITH 0.71 MG HEMEIXIN
     Route: 041
     Dates: start: 20200304, end: 20200308
  9. 0.9% SODIUM CHLORIDE INJECTION [Suspect]
     Active Substance: SODIUM CHLORIDE
     Dosage: DILUTED WITH ONDANSETRON HYDROCHLORIDE; DOSE RE-INTRODUCED
     Route: 041
     Dates: start: 202003
  10. MESNA. [Suspect]
     Active Substance: MESNA
     Indication: CYSTITIS HAEMORRHAGIC
     Route: 042
     Dates: start: 20200304, end: 20200308
  11. HEMEIXIN [Suspect]
     Active Substance: TOPOTECAN HYDROCHLORIDE
     Indication: REFRACTORY CANCER
     Dosage: DILUTED WITH 0.9% SODIUM CHLORIDE; DOSE RE-INTRODUCED
     Route: 041
     Dates: start: 202003
  12. MESNA. [Suspect]
     Active Substance: MESNA
     Dosage: DOSE RE-INTRODUCED
     Route: 042
     Dates: start: 202003

REACTIONS (1)
  - Pancytopenia [Recovering/Resolving]

NARRATIVE: CASE EVENT DATE: 20200310
